FAERS Safety Report 6702556-2 (Version None)
Quarter: 2010Q2

REPORT INFORMATION
  Report Type: 
  Country: None (occurrence: None)
  Receive Date: 20100429
  Receipt Date: 20100416
  Transmission Date: 20101027
  Serious: Yes (Hospitalization)
  Sender: FDA-Public Use
  Company Number: FR-ELI_LILLY_AND_COMPANY-FR201002003722

PATIENT
  Sex: Female

DRUGS (7)
  1. FORTEO [Suspect]
     Indication: OSTEOPOROSIS
     Dosage: 20 UG, DAILY (1/D)
     Route: 065
     Dates: start: 20091012
  2. CARDEGIC [Concomitant]
     Dosage: 160 MG, DAILY (1/D)
     Route: 065
     Dates: start: 20100122
  3. AMLOR [Concomitant]
     Dosage: UNK, UNKNOWN
     Route: 065
     Dates: start: 20100122
  4. ZOMIG [Concomitant]
     Indication: MIGRAINE
     Dosage: UNK, AS NEEDED
     Route: 048
  5. LAMALINE [Concomitant]
     Indication: MIGRAINE
     Dosage: UNK, AS NEEDED
     Route: 048
  6. NEXIUM [Concomitant]
     Dosage: 20 MG, DAILY (1/D)
     Route: 065
  7. CACIT [Concomitant]
     Dosage: 500 MG, DAILY (1/D)
     Route: 065

REACTIONS (3)
  - BLOOD PRESSURE INCREASED [None]
  - CEREBROVASCULAR ACCIDENT [None]
  - HEADACHE [None]
